FAERS Safety Report 8458024-3 (Version None)
Quarter: 2012Q2

REPORT INFORMATION
  Report Type: 
  Country: None (occurrence: None)
  Receive Date: 20120622
  Receipt Date: 20120611
  Transmission Date: 20120825
  Serious: Yes (Death, Hospitalization, Other)
  Sender: FDA-Public Use
  Company Number: KR-ACCORD-013762

PATIENT
  Age: 69 Year
  Sex: Male

DRUGS (3)
  1. DEXAMETHASONE [Concomitant]
     Indication: PREMEDICATION
     Route: 042
  2. DOCETAXEL [Suspect]
     Indication: PROSTATE CANCER
     Dosage: EVERY 3 WEEKS OVER 1 HOUR
     Route: 042
  3. PREDNISONE TAB [Concomitant]
     Indication: PREMEDICATION

REACTIONS (3)
  - LEUKOPENIA [None]
  - SEPTIC SHOCK [None]
  - INTERSTITIAL LUNG DISEASE [None]
